FAERS Safety Report 23183433 (Version 1)
Quarter: 2023Q4

REPORT INFORMATION
  Report Type: Spontaneous
  Country: US (occurrence: US)
  Receive Date: 20231114
  Receipt Date: 20231114
  Transmission Date: 20240110
  Serious: Yes (Other)
  Sender: FDA-Public Use
  Company Number: US-Calliditas-2023CAL01451

PATIENT
  Age: 29 Year
  Sex: Female

DRUGS (1)
  1. TARPEYO [Suspect]
     Active Substance: BUDESONIDE
     Indication: Haematuria
     Dosage: 16MG (4MG CAPSULES) ONCE DAILY
     Route: 048
     Dates: start: 20230128

REACTIONS (10)
  - Product dose omission in error [Unknown]
  - Headache [Unknown]
  - Feeling abnormal [Unknown]
  - Influenza like illness [Unknown]
  - Weight increased [Unknown]
  - Cushingoid [Unknown]
  - Hair growth abnormal [Unknown]
  - Renal impairment [Unknown]
  - COVID-19 [Unknown]
  - Nausea [Unknown]

NARRATIVE: CASE EVENT DATE: 20230801
